FAERS Safety Report 16327546 (Version 1)
Quarter: 2019Q2

REPORT INFORMATION
  Report Type: Spontaneous
  Country: BE (occurrence: BE)
  Receive Date: 20190517
  Receipt Date: 20190517
  Transmission Date: 20190711
  Serious: Yes (Hospitalization)
  Sender: FDA-Public Use
  Company Number: BE-SHIRE-BE201915574

PATIENT

DRUGS (5)
  1. CETRORELIX [Concomitant]
     Active Substance: CETRORELIX
     Indication: PRODUCT USED FOR UNKNOWN INDICATION
  2. FRAXIPARINE [Concomitant]
     Active Substance: NADROPARIN CALCIUM
     Indication: PRODUCT USED FOR UNKNOWN INDICATION
  3. NACL [Concomitant]
     Active Substance: SODIUM CHLORIDE
     Indication: ELECTROLYTE IMBALANCE
  4. HUMAN ALBUMIN [Suspect]
     Active Substance: ALBUMIN HUMAN
     Indication: OVARIAN HYPERSTIMULATION SYNDROME
     Dosage: 100 MILLILITER, 2X/DAY:BID
     Route: 042
  5. HUMAN ALBUMIN [Suspect]
     Active Substance: ALBUMIN HUMAN
     Dosage: 100 MILLILITER, 3X/DAY:TID
     Route: 042

REACTIONS (3)
  - Condition aggravated [Unknown]
  - Exposure during pregnancy [Unknown]
  - Off label use [Unknown]
